FAERS Safety Report 16201106 (Version 1)
Quarter: 2019Q2

REPORT INFORMATION
  Report Type: Spontaneous
  Country: US (occurrence: US)
  Receive Date: 20190416
  Receipt Date: 20190416
  Transmission Date: 20190711
  Serious: No
  Sender: FDA-Public Use
  Company Number: US-BION-007287

PATIENT
  Sex: Female
  Weight: 147 kg

DRUGS (2)
  1. ALEVE [Suspect]
     Active Substance: NAPROXEN SODIUM
     Indication: INFLAMMATION
     Dosage: 1-2 LIQUID GELS DAILY
     Route: 048
  2. TRAMADOL. [Concomitant]
     Active Substance: TRAMADOL
     Dosage: ACTION TAKEN: DOSE NOT CHANGED

REACTIONS (6)
  - Flatulence [Recovered/Resolved]
  - Weight loss poor [Recovered/Resolved]
  - Alopecia [Recovered/Resolved]
  - Incorrect product administration duration [Not Recovered/Not Resolved]
  - Drug ineffective for unapproved indication [Not Recovered/Not Resolved]
  - Product prescribing error [Not Recovered/Not Resolved]
